APPROVED DRUG PRODUCT: DILTIAZEM HYDROCHLORIDE
Active Ingredient: DILTIAZEM HYDROCHLORIDE
Strength: 5MG/ML
Dosage Form/Route: INJECTABLE;INJECTION
Application: A075375 | Product #001
Applicant: MYLAN LABORATORIES LTD
Approved: Sep 30, 1999 | RLD: No | RS: No | Type: DISCN